FAERS Safety Report 13507091 (Version 1)
Quarter: 2017Q2

REPORT INFORMATION
  Report Type: Spontaneous
  Country: US (occurrence: US)
  Receive Date: 20170502
  Receipt Date: 20170502
  Transmission Date: 20170830
  Serious: Yes (Disabling)
  Sender: FDA-Public Use
  Company Number: None

PATIENT
  Age: 60 Year
  Sex: Female
  Weight: 50.85 kg

DRUGS (1)
  1. LEVOFLOXACIN. [Suspect]
     Active Substance: LEVOFLOXACIN
     Indication: BRONCHITIS
     Dosage: ?          QUANTITY:7 TABLET(S);?
     Route: 048
     Dates: start: 20170204, end: 20170208

REACTIONS (4)
  - Autoimmune disorder [None]
  - Thyroid disorder [None]
  - Tendon pain [None]
  - Rheumatoid arthritis [None]

NARRATIVE: CASE EVENT DATE: 20170207
